FAERS Safety Report 7542341-5 (Version None)
Quarter: 2011Q2

REPORT INFORMATION
  Report Type: 
  Country: None (occurrence: None)
  Receive Date: 20110613
  Receipt Date: 20110531
  Transmission Date: 20111010
  Serious: Yes (Disabling)
  Sender: FDA-Public Use
  Company Number: JP-ASTRAZENECA-2011SE35113

PATIENT
  Age: 21479 Day
  Sex: Male

DRUGS (4)
  1. LONASEN [Suspect]
     Indication: SCHIZOPHRENIA
     Route: 048
     Dates: start: 20110304, end: 20110311
  2. MEROPENEM [Suspect]
     Route: 042
  3. LONASEN [Suspect]
     Route: 048
     Dates: start: 20110411, end: 20110414
  4. LONASEN [Suspect]
     Route: 048
     Dates: start: 20110312, end: 20110410

REACTIONS (7)
  - HYPOXIC-ISCHAEMIC ENCEPHALOPATHY [None]
  - MULTI-ORGAN FAILURE [None]
  - COMA [None]
  - PNEUMONIA [None]
  - HEPATIC FUNCTION ABNORMAL [None]
  - ASPARTATE AMINOTRANSFERASE INCREASED [None]
  - ALANINE AMINOTRANSFERASE INCREASED [None]
